FAERS Safety Report 15465512 (Version 2)
Quarter: 2019Q1

REPORT INFORMATION
  Report Type: Spontaneous
  Country: BR (occurrence: BR)
  Receive Date: 20181004
  Receipt Date: 20190118
  Transmission Date: 20190417
  Serious: Yes (Life-Threatening, Other)
  Sender: FDA-Public Use
  Company Number: BR-TERSERA THERAPEUTICS LLC-TSR2018002195

PATIENT

DRUGS (3)
  1. ZOLADEX [Suspect]
     Active Substance: GOSERELIN ACETATE
     Dosage: 10.8 MILLIGRAM, Q3 MONTHS
     Route: 058
     Dates: start: 20181217
  2. ZOLADEX [Suspect]
     Active Substance: GOSERELIN ACETATE
     Indication: URETHRAL CANCER
     Dosage: 3.6 MILLIGRAM, MONTHLY
     Route: 058
     Dates: start: 20180917
  3. ARADOIS [Concomitant]
     Active Substance: LOSARTAN POTASSIUM
     Indication: HYPERTENSION
     Dosage: 50 MILLIGRAM, UNK
     Route: 048

REACTIONS (5)
  - Irritability [Recovered/Resolved]
  - Product use in unapproved indication [Recovered/Resolved]
  - Off label use [Recovered/Resolved]
  - Nervousness [Recovered/Resolved]
  - Suicidal ideation [Recovered/Resolved]

NARRATIVE: CASE EVENT DATE: 201809
